FAERS Safety Report 9523034 (Version 1)
Quarter: 2013Q1

REPORT INFORMATION
  Report Type: Spontaneous
  Country: US (occurrence: None)
  Receive Date: 20130305
  Receipt Date: 20130305
  Transmission Date: 20140127
  Serious: Yes (Other)
  Sender: FDA-Public Use
  Company Number: 163-21880-12032997

PATIENT
  Age: 73 Year
  Sex: Male
  Weight: 99.02 kg

DRUGS (16)
  1. REVLIMID (LENALIDOMIDE) (25 MILLIGRAM, CAPSULES) [Suspect]
     Indication: PLASMA CELL MYELOMA
     Dosage: 1 IN 1 D
     Route: 048
     Dates: start: 20100129, end: 2011
  2. POTASSIUM CHLORIDE [Concomitant]
  3. CENTRUM SILVER [Concomitant]
  4. SIMVASTATIN [Concomitant]
  5. HYDROXYCHLOROQUINE [Concomitant]
  6. PROBENICID [Concomitant]
  7. VITAMIN B12 [Concomitant]
  8. COLOCRYS [Concomitant]
  9. LISINOPRIL [Concomitant]
  10. CYCLOBENZAPRINE [Concomitant]
  11. FUROSEMIDE [Concomitant]
  12. GABAPENTIN [Concomitant]
  13. ASPIRIN [Concomitant]
  14. DEXAMETHASONE [Concomitant]
  15. ZOMETA [Concomitant]
  16. WARFARIN [Concomitant]

REACTIONS (5)
  - Haemorrhage [None]
  - Influenza [None]
  - Groin pain [None]
  - Blood potassium decreased [None]
  - Fatigue [None]
